FAERS Safety Report 7914184-1 (Version None)
Quarter: 2011Q4

REPORT INFORMATION
  Report Type: 
  Country: None (occurrence: None)
  Receive Date: 20111115
  Receipt Date: 20111115
  Transmission Date: 20120403
  Serious: Yes (Life-Threatening, Hospitalization, Disabling)
  Sender: FDA-Public Use
  Company Number: None

PATIENT
  Age: 9 Year
  Sex: Female
  Weight: 35.38 kg

DRUGS (2)
  1. PEG-ASPARAGASE [Suspect]
     Indication: ACUTE LYMPHOCYTIC LEUKAEMIA
     Dosage: 3000 IU IN 0.9% NS 100ML BAG
     Route: 042
     Dates: start: 20111101, end: 20111101
  2. VINCRISTINE [Concomitant]
     Route: 042

REACTIONS (5)
  - CARDIAC ARREST [None]
  - FEELING HOT [None]
  - CONVULSION [None]
  - PRURITUS [None]
  - APNOEA [None]
